FAERS Safety Report 5648486-9 (Version None)
Quarter: 2008Q1

REPORT INFORMATION
  Report Type: 
  Country: None (occurrence: None)
  Receive Date: 20080304
  Receipt Date: 20080304
  Transmission Date: 20080703
  Serious: Yes (Other)
  Sender: FDA-Public Use
  Company Number: None

PATIENT
  Age: 80 Year
  Sex: Male

DRUGS (1)
  1. HEPARIN LOCK-FLUSH [Suspect]

REACTIONS (4)
  - BLOOD CULTURE POSITIVE [None]
  - FALL [None]
  - SERRATIA INFECTION [None]
  - SUBDURAL HAEMATOMA [None]
